FAERS Safety Report 5904605-8 (Version None)
Quarter: 2008Q4

REPORT INFORMATION
  Report Type: 
  Country: None (occurrence: None)
  Receive Date: 20081001
  Receipt Date: 20080918
  Transmission Date: 20090506
  Serious: Yes (Hospitalization, Disabling)
  Sender: FDA-Public Use
  Company Number: AT-ASTRAZENECA-2008PK02004

PATIENT
  Age: 25183 Day
  Sex: Female
  Weight: 74.6 kg

DRUGS (3)
  1. NOLVADEX [Suspect]
     Indication: BREAST CANCER
     Route: 048
     Dates: start: 20040902, end: 20050913
  2. ARIMIDEX [Suspect]
     Indication: BREAST CANCER
     Route: 048
     Dates: start: 20050914, end: 20060402
  3. FEMARA [Concomitant]
     Route: 048
     Dates: start: 20060403

REACTIONS (1)
  - HEPATIC STEATOSIS [None]
